FAERS Safety Report 5134514-6 (Version None)
Quarter: 2006Q4

REPORT INFORMATION
  Report Type: 
  Country: None (occurrence: None)
  Receive Date: 20061025
  Receipt Date: 20061016
  Transmission Date: 20070319
  Serious: Yes (Hospitalization)
  Sender: FDA-Public Use
  Company Number: US-AMGEN-US197525

PATIENT
  Sex: Female

DRUGS (1)
  1. EPOGEN [Suspect]
     Indication: ANAEMIA OF MALIGNANT DISEASE
     Route: 058

REACTIONS (4)
  - DEHYDRATION [None]
  - DIARRHOEA [None]
  - LOSS OF CONSCIOUSNESS [None]
  - NAUSEA [None]
